FAERS Safety Report 17217332 (Version 1)
Quarter: 2019Q4

REPORT INFORMATION
  Report Type: Spontaneous
  Country: GB (occurrence: GB)
  Receive Date: 20191231
  Receipt Date: 20191231
  Transmission Date: 20200122
  Serious: Yes (Other)
  Sender: FDA-Public Use
  Company Number: GB-IBIGEN-2019.07939

PATIENT
  Age: 32 Year
  Sex: Female
  Weight: 57 kg

DRUGS (5)
  1. PIPERACILLIN AND TAZOBACTAM [Suspect]
     Active Substance: PIPERACILLIN SODIUM\TAZOBACTAM SODIUM
     Dosage: ?
     Route: 042
     Dates: start: 20191205
  2. FERROUS SULFATE. [Concomitant]
     Active Substance: FERROUS SULFATE
     Dosage: 2 MONTHS THEN STOP (BLOOD TEST 1 ...
     Dates: start: 20191009, end: 201912
  3. SERTRALINE [Concomitant]
     Active Substance: SERTRALINE HYDROCHLORIDE
     Dates: start: 20180926, end: 20191022
  4. LACTULOSE. [Concomitant]
     Active Substance: LACTULOSE
     Dates: start: 20191030, end: 20191127
  5. DESOGESTREL [Concomitant]
     Active Substance: DESOGESTREL
     Dates: start: 20191107

REACTIONS (2)
  - Rash [Recovered/Resolved]
  - Dyspnoea [Recovered/Resolved]

NARRATIVE: CASE EVENT DATE: 20191205
